FAERS Safety Report 5142770-3 (Version None)
Quarter: 2006Q4

REPORT INFORMATION
  Report Type: 
  Country: None (occurrence: None)
  Receive Date: 20061027
  Receipt Date: 20061013
  Transmission Date: 20070319
  Serious: Yes (Hospitalization, Other)
  Sender: FDA-Public Use
  Company Number: US200608001189

PATIENT
  Age: 28 Year
  Sex: Male
  Weight: 136.1 kg

DRUGS (3)
  1. OLANZAPINE [Suspect]
     Indication: SCHIZOPHRENIA
     Dosage: SEE IMAGE
     Route: 048
     Dates: end: 20050101
  2. OLANZAPINE [Suspect]
     Indication: SCHIZOPHRENIA
     Dosage: SEE IMAGE
     Route: 048
     Dates: start: 19970101
  3. ABILIFY [Concomitant]

REACTIONS (4)
  - BILIARY TRACT DISORDER [None]
  - CHOLECYSTECTOMY [None]
  - GENERAL PHYSICAL HEALTH DETERIORATION [None]
  - PANCREATITIS [None]
